FAERS Safety Report 9206081 (Version 2)
Quarter: 2013Q4

REPORT INFORMATION
  Report Type: Spontaneous
  Country: US (occurrence: US)
  Receive Date: 20130403
  Receipt Date: 20131028
  Transmission Date: 20140711
  Serious: Yes (Other)
  Sender: FDA-Public Use
  Company Number: US-BAYER-2013-039976

PATIENT
  Age: 30 Year
  Sex: Female

DRUGS (5)
  1. YAZ [Suspect]
  2. LISINOPRIL/HYDROCHLOROTHIAZIDE [Concomitant]
     Dosage: 10MG-12.5 MG
     Dates: start: 20090921
  3. ALDACTONE A [Concomitant]
     Dosage: 50 MG, 2 TIMES A DAY
     Dates: start: 20090922
  4. PROMETHAZINE [Concomitant]
     Indication: NAUSEA
     Dosage: 25 MG, PRN EVERY 8 HOURS
     Dates: start: 20090928
  5. HYDROCHLORZIDE [Concomitant]
     Dosage: 50 MG, DAILY
     Dates: start: 20090928

REACTIONS (5)
  - Cholecystectomy [None]
  - Cholecystitis chronic [None]
  - Injury [None]
  - Pain [None]
  - Pain [None]
